FAERS Safety Report 4551773-9 (Version None)
Quarter: 2005Q1

REPORT INFORMATION
  Report Type: 
  Country: None (occurrence: None)
  Receive Date: 20050113
  Receipt Date: 20041119
  Transmission Date: 20050727
  Serious: Yes (Hospitalization)
  Sender: FDA-Public Use
  Company Number: FR-GLAXOSMITHKLINE-B0357410A

PATIENT
  Age: 79 Year
  Sex: Male
  Weight: 89 kg

DRUGS (6)
  1. VENTOLIN [Suspect]
     Indication: CHRONIC OBSTRUCTIVE PULMONARY DISEASE
     Route: 055
     Dates: end: 20041004
  2. BECOTIDE [Suspect]
     Indication: CHRONIC OBSTRUCTIVE PULMONARY DISEASE
     Route: 055
     Dates: end: 20041004
  3. DIAMICRON [Suspect]
     Indication: DIABETES MELLITUS
     Dosage: 1UNIT PER DAY
     Route: 048
  4. TAHOR [Suspect]
     Indication: HYPERLIPIDAEMIA
     Dosage: 10MG PER DAY
     Route: 048
     Dates: end: 20041004
  5. NISISCO [Suspect]
     Indication: HYPERTENSION
     Dosage: 1UNIT PER DAY
     Route: 048
     Dates: end: 20041004
  6. PERMIXON [Suspect]
     Dosage: 160MG PER DAY
     Route: 048
     Dates: end: 20041004

REACTIONS (4)
  - ATELECTASIS [None]
  - HYPERCAPNIC ENCEPHALOPATHY [None]
  - PERICARDITIS [None]
  - PLEURISY [None]
